FAERS Safety Report 8387551-2 (Version None)
Quarter: 2012Q2

REPORT INFORMATION
  Report Type: 
  Country: None (occurrence: None)
  Receive Date: 20120525
  Receipt Date: 20120522
  Transmission Date: 20120825
  Serious: Yes (Other)
  Sender: FDA-Public Use
  Company Number: PHEH2011US011352

PATIENT
  Sex: Female

DRUGS (1)
  1. AREDIA [Suspect]
     Route: 042

REACTIONS (3)
  - PATHOLOGICAL FRACTURE [None]
  - MUSCULOSKELETAL PAIN [None]
  - METASTASES TO LYMPH NODES [None]
